FAERS Safety Report 16122440 (Version 1)
Quarter: 2019Q1

REPORT INFORMATION
  Report Type: Spontaneous
  Country: US (occurrence: US)
  Receive Date: 20190327
  Receipt Date: 20190327
  Transmission Date: 20190418
  Serious: Yes (Death, Life-Threatening)
  Sender: FDA-Public Use
  Company Number: US-009507513-99020839

PATIENT
  Age: 34 Year
  Sex: Female

DRUGS (101)
  1. METHOTREXATE SODIUM. [Suspect]
     Active Substance: METHOTREXATE SODIUM
     Indication: BURKITT^S LYMPHOMA
     Dosage: DAILY DOSE: 5000 MG.
     Route: 065
     Dates: start: 19960730, end: 19960730
  2. VERGENTAN [Suspect]
     Active Substance: ALIZAPRIDE HYDROCHLORIDE
     Indication: NAUSEA
     Dosage: DAILY DOSE: 2 DF.
     Route: 042
     Dates: start: 19960802, end: 19960802
  3. PSYQUIL [Suspect]
     Active Substance: TRIFLUPROMAZINE HYDROCHLORIDE
     Indication: RESTLESSNESS
     Dosage: DAILY DOSE: 1 DF.
     Route: 042
     Dates: start: 19960816
  4. LIPOFUNDIN MCT [Suspect]
     Active Substance: MEDIUM-CHAIN TRIGLYCERIDES\SOYBEAN OIL
     Indication: PARENTERAL NUTRITION
     Dosage: UNK
     Route: 042
     Dates: start: 19960809
  5. DEXAMETHASONE. [Suspect]
     Active Substance: DEXAMETHASONE
     Indication: BURKITT^S LYMPHOMA
     Dosage: DAILY DOSE: 4 MG.
     Route: 038
     Dates: start: 19960802, end: 19960802
  6. CYTARABINE. [Suspect]
     Active Substance: CYTARABINE
     Indication: BURKITT^S LYMPHOMA
     Dosage: DAILY DOSE: 4 MG.
     Route: 038
     Dates: start: 19960730, end: 19960730
  7. POTASSIUM CHLORIDE. [Concomitant]
     Active Substance: POTASSIUM CHLORIDE
     Dosage: UNK
     Route: 042
     Dates: start: 19960816
  8. TUTOFUSIN G5 [Concomitant]
     Indication: PARENTERAL NUTRITION
     Dosage: UNK
     Route: 042
     Dates: start: 19960816
  9. STEROFUNDIN [Concomitant]
     Active Substance: CALCIUM CHLORIDE\MAGNESIUM CHLORIDE\POTASSIUM CHLORIDE\SODIUM ACETATE\SODIUM CHLORIDE
     Dosage: DAILY DOSE: 1440 ML.
     Route: 042
     Dates: start: 19960730, end: 19960802
  10. URBASON [Concomitant]
     Active Substance: METHYLPREDNISOLONE
     Indication: BURKITT^S LYMPHOMA
     Dosage: UNK
     Route: 048
     Dates: end: 19960729
  11. CIPROBAY (CIPROFLOXACIN HYDROCHLORIDE) [Suspect]
     Active Substance: CIPROFLOXACIN HYDROCHLORIDE
     Indication: ANTIBIOTIC THERAPY
     Dosage: DAILY DOSE: 1 DF.
     Route: 041
     Dates: start: 19960817, end: 19960817
  12. DIPIDOLOR [Suspect]
     Active Substance: PIRITRAMIDE
     Indication: PAIN
     Dosage: UNK
     Route: 041
     Dates: start: 19960816
  13. DIPIDOLOR [Suspect]
     Active Substance: PIRITRAMIDE
     Dosage: DAILY DOSE: 3.75 MG.
     Route: 042
     Dates: start: 19960816
  14. DOPAMINE HYDROCHLORIDE. [Suspect]
     Active Substance: DOPAMINE HYDROCHLORIDE
     Indication: SHOCK
     Dosage: DAILY DOSE: 200 MG.
     Route: 041
     Dates: start: 19960817
  15. ALBUMIN HUMAN [Suspect]
     Active Substance: ALBUMIN HUMAN
     Dosage: UNK
     Route: 041
     Dates: start: 19960816, end: 19960817
  16. MULTIBIONTA [Suspect]
     Active Substance: MINERALS\PROBIOTICS NOS\VITAMINS
     Indication: HYPOVITAMINOSIS
     Dosage: DAILY DOSE: 1 DF.
     Route: 041
     Dates: start: 19960802, end: 19960802
  17. VITALIPID [Suspect]
     Active Substance: ERGOCALCIFEROL\PHYTONADIONE\RETINOL\TOCOPHEROL
     Dosage: DAILY DOSE: 1 DF.
     Route: 042
     Dates: start: 19960809, end: 19960816
  18. ZOFRAN [Suspect]
     Active Substance: ONDANSETRON HYDROCHLORIDE
     Indication: NAUSEA
     Dosage: DAILY DOSE: 1 DF.
     Route: 041
     Dates: start: 19960730, end: 19960809
  19. VINDESINE [Suspect]
     Active Substance: VINDESINE
     Indication: BURKITT^S LYMPHOMA
     Dosage: DAILY DOSE: 5 MG.
     Route: 042
     Dates: start: 19960730, end: 19960730
  20. LEUCOVORIN. [Suspect]
     Active Substance: LEUCOVORIN
     Indication: ANAEMIA FOLATE DEFICIENCY
     Dosage: DAILY DOSE: 75 MG.
     Route: 042
     Dates: start: 19960801, end: 19960801
  21. DEXAMETHASONE. [Suspect]
     Active Substance: DEXAMETHASONE
     Indication: BURKITT^S LYMPHOMA
     Dosage: DAILY DOSE: 170 MG.
     Route: 048
     Dates: start: 19960730, end: 19960803
  22. POTASSIUM CHLORIDE. [Concomitant]
     Active Substance: POTASSIUM CHLORIDE
     Indication: HYPOKALAEMIA
     Dosage: UNK
     Route: 042
     Dates: start: 19960816
  23. DEXTROSE. [Concomitant]
     Active Substance: DEXTROSE
     Indication: PARENTERAL NUTRITION
     Dosage: DAILY DOSE: 1000 ML.
     Route: 042
     Dates: start: 19960817, end: 19960817
  24. AMPHOTERICIN B. [Suspect]
     Active Substance: AMPHOTERICIN B
     Indication: FUNGAL INFECTION
     Dosage: DAILY DOSE: 40 MG.
     Route: 041
     Dates: start: 19960816
  25. ANCOTIL [Suspect]
     Active Substance: FLUCYTOSINE
     Indication: FUNGAL INFECTION
     Dosage: DAILY DOSE: 4 G.
     Route: 042
     Dates: start: 19960814
  26. BIFITERAL [Suspect]
     Active Substance: LACTULOSE
     Indication: CONSTIPATION
     Dosage: UNK
     Route: 048
     Dates: start: 19960813, end: 19960813
  27. DOLANTIN [Suspect]
     Active Substance: MEPERIDINE
     Indication: PAIN
     Dosage: UNK
     Route: 041
     Dates: start: 19960816, end: 19960816
  28. METHOTREXATE SODIUM. [Suspect]
     Active Substance: METHOTREXATE SODIUM
     Dosage: DAILY DOSE: 15 MG
     Route: 038
     Dates: start: 19960802, end: 19960802
  29. METRONIDAZOLE. [Suspect]
     Active Substance: METRONIDAZOLE
     Indication: ANTIBIOTIC THERAPY
     Dosage: DAILY DOSE: 3 DF.
     Route: 041
     Dates: start: 19960805, end: 19960809
  30. METOCLOPRAMIDE HYDROCHLORIDE. [Suspect]
     Active Substance: METOCLOPRAMIDE HYDROCHLORIDE
     Dosage: UNK
     Route: 041
     Dates: start: 19960804
  31. CLINDAMYCIN HYDROCHLORIDE. [Suspect]
     Active Substance: CLINDAMYCIN HYDROCHLORIDE
     Dosage: UNK
     Route: 041
     Dates: start: 19960817, end: 19960817
  32. VANCOMYCIN [Suspect]
     Active Substance: VANCOMYCIN
     Dosage: DAILY DOSE: 1.5 G.
     Route: 042
     Dates: start: 19960811
  33. VM 26 [Suspect]
     Active Substance: TENIPOSIDE
     Indication: BURKITT^S LYMPHOMA
     Dosage: DAILY DOSE: 170 MG.
     Route: 042
     Dates: start: 19960802, end: 19960803
  34. NUTRIFLEX [Suspect]
     Active Substance: AMINO ACIDS\CARBOHYDRATES\ELECTROLYTES NOS
     Indication: PARENTERAL NUTRITION
     Dosage: UNK
     Route: 042
     Dates: start: 19960802, end: 19960804
  35. AMINOMIX /03395601/ [Suspect]
     Active Substance: AMINO ACIDS\DEXTROSE\ELECTROLYTES NOS
     Indication: AMINO ACID METABOLISM DISORDER
     Dosage: DAILY DOSE: 1000 ML.
     Route: 042
     Dates: start: 19960816, end: 19960816
  36. AMINO MEL OPTIMAL [Suspect]
     Active Substance: AMINO ACIDS
     Indication: PARENTERAL NUTRITION
     Dosage: DAILY DOSE: 1920 ML.
     Route: 042
     Dates: start: 19960809, end: 19960813
  37. TUTOFUSIN G5 [Concomitant]
     Dosage: UNK
     Route: 042
     Dates: start: 19960730, end: 19960803
  38. PRIMAXIN IV [Suspect]
     Active Substance: CILASTATIN SODIUM\IMIPENEM
     Indication: ANTIBIOTIC THERAPY
     Dosage: DAILY DOSE: 0.5 G.
     Route: 041
     Dates: start: 19960816, end: 19960816
  39. CLAFORAN [Suspect]
     Active Substance: CEFOTAXIME SODIUM
     Indication: ANTIBIOTIC THERAPY
     Dosage: DAILY DOSE: 6 G.
     Route: 041
     Dates: start: 19960805, end: 19960809
  40. DIFLUCAN [Suspect]
     Active Substance: FLUCONAZOLE
     Indication: CANDIDA INFECTION
     Dosage: DAILY DOSE: 400 MG.
     Route: 048
     Dates: start: 19960730, end: 19960803
  41. DIFLUCAN [Suspect]
     Active Substance: FLUCONAZOLE
     Dosage: DAILY DOSE: 400 MG.
     Route: 048
     Dates: start: 19960705, end: 19960816
  42. DOLANTIN [Suspect]
     Active Substance: MEPERIDINE
     Dosage: DAILY DOSE: 25 MG.
     Route: 042
     Dates: start: 19960816, end: 19960816
  43. METHOTREXATE SODIUM. [Suspect]
     Active Substance: METHOTREXATE SODIUM
     Dosage: DAILY DOSE: 15 MG
     Route: 038
     Dates: start: 19960730, end: 19960730
  44. MULTIBIONTA [Suspect]
     Active Substance: MINERALS\PROBIOTICS NOS\VITAMINS
     Dosage: DAILY DOSE: 1 DF.
     Route: 042
     Dates: start: 19960806, end: 19960806
  45. MULTIBIONTA [Suspect]
     Active Substance: MINERALS\PROBIOTICS NOS\VITAMINS
     Dosage: DAILY DOSE: 1 DF.
     Route: 042
     Dates: start: 19960812, end: 19960812
  46. MULTIBIONTA [Suspect]
     Active Substance: MINERALS\PROBIOTICS NOS\VITAMINS
     Dosage: DAILY DOSE: 1 DF.
     Route: 042
     Dates: start: 19960814, end: 19960814
  47. ZOFRAN [Suspect]
     Active Substance: ONDANSETRON HYDROCHLORIDE
     Dosage: DAILY DOSE: 1 DF.
     Route: 042
     Dates: start: 19960730, end: 19960804
  48. SOBELIN (CLINDAMYCIN) [Suspect]
     Active Substance: CLINDAMYCIN
     Indication: ANTIBIOTIC THERAPY
     Dosage: DAILY DOSE: 200 MG.
     Route: 042
     Dates: start: 19960817, end: 19960817
  49. AMPHO MORONAL [Suspect]
     Active Substance: AMPHOTERICIN B
     Indication: CANDIDA INFECTION
     Dosage: DAILY DOSE: 1 DF.
     Route: 048
     Dates: start: 19960729, end: 19960816
  50. SODIUM CHLORIDE. [Concomitant]
     Active Substance: SODIUM CHLORIDE
     Indication: ILL-DEFINED DISORDER
     Dosage: UNK
     Route: 042
     Dates: start: 19960802, end: 19960816
  51. TUTOFUSIN G5 [Concomitant]
     Dosage: UNK
     Route: 042
     Dates: start: 19960811
  52. FERRO-SANOL DUODENAL [Concomitant]
     Active Substance: FERROUS GLYCINE SULFATE
     Indication: IRON DEFICIENCY
     Dosage: DAILY DOSE: 1 DF.
     Route: 048
     Dates: end: 19960729
  53. STEROFUNDIN [Concomitant]
     Active Substance: CALCIUM CHLORIDE\MAGNESIUM CHLORIDE\POTASSIUM CHLORIDE\SODIUM ACETATE\SODIUM CHLORIDE
     Indication: ILL-DEFINED DISORDER
     Dosage: DAILY DOSE: 1440 ML.
     Route: 042
     Dates: start: 19960804, end: 19960808
  54. ANCOTIL [Suspect]
     Active Substance: FLUCYTOSINE
     Dosage: UNK
     Route: 041
     Dates: start: 19960815
  55. ISOPTIN [Suspect]
     Active Substance: VERAPAMIL HYDROCHLORIDE
     Indication: HYPERTENSION
     Dosage: DAILY DOSE: 50 MG.
     Route: 041
     Dates: start: 19960817, end: 19960817
  56. MORPHINE SULFATE. [Suspect]
     Active Substance: MORPHINE SULFATE
     Dosage: UNK
     Route: 041
     Dates: start: 19960808, end: 19960816
  57. SOLU-DECORTIN-H [Suspect]
     Active Substance: PREDNISOLONE SODIUM SUCCINATE
     Indication: PRURITUS
     Dosage: DAILY DOSE: 50 MG.
     Route: 041
     Dates: start: 19960817, end: 19960817
  58. VITALIPID [Suspect]
     Active Substance: ERGOCALCIFEROL\PHYTONADIONE\RETINOL\TOCOPHEROL
     Indication: PARENTERAL NUTRITION
     Dosage: DAILY DOSE: 1 DF.
     Route: 041
     Dates: start: 19960809, end: 19960816
  59. ALLOPURINOL. [Suspect]
     Active Substance: ALLOPURINOL
     Indication: HYPERURICAEMIA
     Dosage: DAILY DOSE: 300 MG
     Route: 048
     Dates: start: 19960729, end: 19960812
  60. RIOPAN (MAGALDRATE) [Suspect]
     Active Substance: MAGALDRATE
     Indication: PROPHYLAXIS
     Dosage: DAILY DOSE: 3 DF.
     Route: 048
     Dates: start: 19960804, end: 19960804
  61. PANTOZOL [Suspect]
     Active Substance: PANTOPRAZOLE SODIUM
     Indication: PROPHYLAXIS
     Dosage: DAILY DOSE: 1 DF.
     Route: 048
     Dates: start: 19960804, end: 19960806
  62. URALYT U [Concomitant]
     Indication: PROPHYLAXIS
     Dosage: UNK
     Route: 048
     Dates: start: 19960729, end: 19960731
  63. NATRIUMBIKARBONAT FRESENIUS KABI [Concomitant]
     Indication: METABOLIC ACIDOSIS
     Route: 048
     Dates: start: 19960729, end: 19960731
  64. ANTRA (OMEPRAZOLE) [Suspect]
     Active Substance: OMEPRAZOLE
     Indication: PROPHYLAXIS
     Dosage: DAILY DOSE: 20 MG.
     Route: 041
     Dates: start: 19960730, end: 19960804
  65. ANTRA (OMEPRAZOLE) [Suspect]
     Active Substance: OMEPRAZOLE
     Dosage: DAILY DOSE: 20 MG.
     Route: 042
     Dates: start: 19960806
  66. IMODIUM [Suspect]
     Active Substance: LOPERAMIDE HYDROCHLORIDE
     Indication: DIARRHOEA INFECTIOUS
     Dosage: DAILY DOSE: 6 DF.
     Route: 048
     Dates: start: 19960731, end: 19960816
  67. LIQUEMIN (HEPARIN SODIUM) [Suspect]
     Active Substance: HEPARIN SODIUM
     Indication: THROMBOSIS PROPHYLAXIS
     Dosage: UNK
     Route: 058
     Dates: start: 19960806
  68. MULTIBIONTA [Suspect]
     Active Substance: MINERALS\PROBIOTICS NOS\VITAMINS
     Dosage: DAILY DOSE: 1 DF.
     Route: 042
     Dates: start: 19960804, end: 19960804
  69. MULTIBIONTA [Suspect]
     Active Substance: MINERALS\PROBIOTICS NOS\VITAMINS
     Dosage: DAILY DOSE: 1 DF.
     Route: 042
     Dates: start: 19960810, end: 19960810
  70. NOVALGIN (DIPYRONE) [Suspect]
     Active Substance: DIPYRONE
     Dosage: DAILY DOSE: 1 DF.
     Route: 042
     Dates: start: 19960819, end: 19960819
  71. NEUPOGEN [Suspect]
     Active Substance: FILGRASTIM
     Indication: NEUTROPENIA
     Dosage: DAILY DOSE: 1 DF.
     Route: 058
     Dates: start: 19960816, end: 19960817
  72. TAVEGIL [Suspect]
     Active Substance: CLEMASTINE FUMARATE
     Indication: PRURITUS
     Dosage: DAILY DOSE: 1 DF.
     Route: 041
     Dates: start: 19960816
  73. HUMAN ACTRAPID [Suspect]
     Active Substance: INSULIN HUMAN
     Indication: BLOOD GLUCOSE INCREASED
     Dosage: DAILY DOSE: 50 IU.
     Route: 058
     Dates: start: 19960816
  74. ACETAMINOPHEN. [Suspect]
     Active Substance: ACETAMINOPHEN
     Dosage: UNK
     Route: 048
     Dates: start: 19960810, end: 19960811
  75. DORMICUM (MIDAZOLAM MALEATE) [Suspect]
     Active Substance: MIDAZOLAM MALEATE
     Indication: SEDATION
     Dosage: UNK
     Route: 041
     Dates: start: 19960818
  76. UROMITEXAN [Suspect]
     Active Substance: MESNA
     Indication: PROPHYLAXIS
     Dosage: DAILY DOSE: 1200 MG.
     Route: 042
     Dates: start: 19960730, end: 19960804
  77. MST (MORPHINE SULFATE) [Suspect]
     Active Substance: MORPHINE SULFATE
     Indication: PAIN
     Dosage: UNK
     Route: 042
     Dates: start: 19960808, end: 19960816
  78. ALBUMIN HUMAN [Suspect]
     Active Substance: ALBUMIN HUMAN
     Indication: BLOOD ALBUMIN DECREASED
     Dosage: DAILY DOSE: 400 ML.
     Route: 042
     Dates: start: 19960816, end: 19960817
  79. FORTECORTIN [Suspect]
     Active Substance: DEXAMETHASONE
     Indication: BURKITT^S LYMPHOMA
     Dosage: DAILY DOSE: 17 MG.
     Route: 048
     Dates: start: 19960729, end: 19960812
  80. CYTARABINE. [Suspect]
     Active Substance: CYTARABINE
     Dosage: DAILY DOSE: 4 MG.
     Route: 038
     Dates: start: 19960802, end: 19960802
  81. CYTARABINE. [Suspect]
     Active Substance: CYTARABINE
     Dosage: UNK
     Route: 042
     Dates: start: 19960802, end: 19960803
  82. GENTAMICIN SULFATE. [Suspect]
     Active Substance: GENTAMICIN SULFATE
     Indication: ANTIBIOTIC THERAPY
     Dosage: DAILY DOSE: 360 MG
     Route: 041
     Dates: start: 19960805, end: 19960805
  83. AMOXICILLIN (+) CLAVULANATE POTASSIUM [Suspect]
     Active Substance: AMOXICILLIN\CLAVULANATE POTASSIUM
     Dosage: UNK
     Route: 041
     Dates: start: 19960807, end: 19960811
  84. LASIX [Suspect]
     Active Substance: FUROSEMIDE
     Indication: FLUID RETENTION
     Dosage: DAILY DOSE: 20 MG.
     Route: 048
     Dates: start: 19960814, end: 19960814
  85. MERONEM [Suspect]
     Active Substance: MEROPENEM
     Indication: ANTIBIOTIC THERAPY
     Dosage: DAILY DOSE: 0.5 G.
     Route: 041
     Dates: start: 19960816
  86. OPIUM. [Suspect]
     Active Substance: OPIUM
     Indication: PAIN
     Dosage: DAILY DOSE: 5 DF.
     Route: 048
     Dates: start: 19960807, end: 19960812
  87. OPIUM. [Suspect]
     Active Substance: OPIUM
     Dosage: DAILY DOSE: 5 DF.
     Route: 048
     Dates: start: 19960817, end: 19960818
  88. VANCOMYCIN [Suspect]
     Active Substance: VANCOMYCIN
     Indication: ANTIBIOTIC THERAPY
     Dosage: UNK
     Route: 041
     Dates: start: 19960811
  89. ACETAMINOPHEN. [Suspect]
     Active Substance: ACETAMINOPHEN
     Indication: PAIN
     Dosage: UNK
     Route: 048
     Dates: start: 19960805, end: 19960805
  90. PASPERTIN [METOCLOPRAMIDE HYDROCHLORIDE] [Suspect]
     Active Substance: METOCLOPRAMIDE HYDROCHLORIDE
     Indication: GASTROINTESTINAL DISORDER
     Dosage: DAILY DOSE: 2 DF.
     Route: 042
     Dates: start: 19960814
  91. PASPERTIN (METOCLOPRAMIDE HYDROCHLORIDE) [Suspect]
     Active Substance: METOCLOPRAMIDE HYDROCHLORIDE
     Dosage: DAILY DOSE: 2 DF.
     Route: 042
     Dates: start: 19960804, end: 19960805
  92. MAGNORBIN [Suspect]
     Active Substance: MAGNESIUM ASCORBATE
     Indication: MAGNESIUM DEFICIENCY
     Dosage: DAILY DOSE: 2 DF.
     Route: 042
     Dates: start: 19960806
  93. IFOSFAMIDE. [Suspect]
     Active Substance: IFOSFAMIDE
     Indication: BURKITT^S LYMPHOMA
     Dosage: DAILY DOSE: 1300 MG.
     Route: 042
     Dates: start: 19960730, end: 19960803
  94. DEXAMETHASONE. [Suspect]
     Active Substance: DEXAMETHASONE
     Dosage: DAILY DOSE: 4 MG.
     Route: 038
     Dates: start: 19960730, end: 19960730
  95. GRANULOCYTE-MACROPHAGE COLONY STIMULATING FACTOR (UNSPECIFIED) [Suspect]
     Active Substance: GRANULOCYTE-MACROPHAGE COLONY-STIMULATING FACTOR
     Dosage: UNK
     Route: 058
     Dates: start: 19960804, end: 19960815
  96. MULTIBIONTA [Suspect]
     Active Substance: MINERALS\PROBIOTICS NOS\VITAMINS
     Dosage: DAILY DOSE: 1 DF.
     Route: 042
     Dates: start: 19960808, end: 19960808
  97. MULTIBIONTA [Suspect]
     Active Substance: MINERALS\PROBIOTICS NOS\VITAMINS
     Dosage: DAILY DOSE: 1 DF.
     Route: 042
     Dates: start: 19960816, end: 19960816
  98. NOVALGIN (DIPYRONE) [Suspect]
     Active Substance: DIPYRONE
     Indication: PAIN
     Dosage: DAILY DOSE: 1 DF.
     Route: 041
     Dates: start: 19960811, end: 19960811
  99. TRIFLUPROMAZINE [Suspect]
     Active Substance: TRIFLUPROMAZINE
     Dosage: UNK
     Route: 041
     Dates: start: 19960816
  100. SUPRARENIN [Suspect]
     Active Substance: EPINEPHRINE
     Indication: SHOCK
     Dosage: DAILY DOSE: 3 DF.
     Route: 041
     Dates: start: 19960817
  101. LEUCOMAX [Suspect]
     Active Substance: MOLGRAMOSTIM
     Indication: INFECTION PROPHYLAXIS
     Dosage: DAILY DOSE: 300 MCG.
     Route: 058
     Dates: start: 19960804, end: 19960815

REACTIONS (4)
  - Toxic epidermal necrolysis [Fatal]
  - Shock [Fatal]
  - Stevens-Johnson syndrome [Fatal]
  - Pruritus [Fatal]

NARRATIVE: CASE EVENT DATE: 19960816
